FAERS Safety Report 25248458 (Version 1)
Quarter: 2025Q2

REPORT INFORMATION
  Report Type: Spontaneous
  Country: US (occurrence: US)
  Receive Date: 20250429
  Receipt Date: 20250429
  Transmission Date: 20250716
  Serious: No
  Sender: TARO
  Company Number: US-TARO PHARMACEUTICALS USA INC.-2024TAR01008

PATIENT

DRUGS (3)
  1. FLUOROURACIL [Suspect]
     Active Substance: FLUOROURACIL
     Indication: Skin exfoliation
     Route: 061
     Dates: start: 20240627, end: 20240704
  2. FLUOROURACIL [Suspect]
     Active Substance: FLUOROURACIL
     Indication: Pigmentation disorder
  3. OMEPRAZOLE [Concomitant]
     Active Substance: OMEPRAZOLE
     Indication: Product used for unknown indication
     Route: 065

REACTIONS (4)
  - Lip blister [Recovering/Resolving]
  - Lip pain [Recovered/Resolved]
  - Lip swelling [Recovering/Resolving]
  - Application site erosion [Recovering/Resolving]

NARRATIVE: CASE EVENT DATE: 20240704
